FAERS Safety Report 14776141 (Version 1)
Quarter: 2018Q2

REPORT INFORMATION
  Report Type: Spontaneous
  Country: US (occurrence: US)
  Receive Date: 20180418
  Receipt Date: 20180418
  Transmission Date: 20180711
  Serious: Yes (Hospitalization, Other)
  Sender: FDA-Public Use
  Company Number: US-SA-2018SA111830

PATIENT
  Sex: Male

DRUGS (3)
  1. PLAVIX [Suspect]
     Active Substance: CLOPIDOGREL BISULFATE
     Route: 065
  2. PLETAL [Suspect]
     Active Substance: CILOSTAZOL
     Route: 065
  3. ELIQUIS [Concomitant]
     Active Substance: APIXABAN
     Indication: ATRIAL FIBRILLATION
     Route: 065

REACTIONS (12)
  - Rash macular [Unknown]
  - Pruritus [Unknown]
  - Gait disturbance [Unknown]
  - Fatigue [Unknown]
  - Bedridden [Unknown]
  - Weight decreased [Unknown]
  - Rash [Unknown]
  - Burning sensation [Unknown]
  - Aortic aneurysm rupture [Unknown]
  - Haematochezia [Recovered/Resolved]
  - Insomnia [Unknown]
  - Asthenia [Unknown]
